FAERS Safety Report 16986063 (Version 1)
Quarter: 2019Q4

REPORT INFORMATION
  Report Type: Spontaneous
  Country: US (occurrence: US)
  Receive Date: 20190918
  Receipt Date: 20190918
  Transmission Date: 20200122
  Serious: Yes (Hospitalization)
  Sender: FDA-Public Use
  Company Number: None

PATIENT
  Age: 63 Year
  Sex: Female
  Weight: 55.34 kg

DRUGS (2)
  1. VITAMIN C [Concomitant]
     Active Substance: ASCORBIC ACID
  2. BOSULIF [Suspect]
     Active Substance: BOSUTINIB MONOHYDRATE
     Indication: CHRONIC MYELOID LEUKAEMIA
     Dosage: ?          QUANTITY:1 DF DOSAGE FORM;?
     Route: 048
     Dates: start: 20190821, end: 20190831

REACTIONS (10)
  - Rash [None]
  - Loss of consciousness [None]
  - Vomiting [None]
  - Nausea [None]
  - Pyrexia [None]
  - Nephropathy toxic [None]
  - Diarrhoea [None]
  - Gait inability [None]
  - Eye swelling [None]
  - Dehydration [None]

NARRATIVE: CASE EVENT DATE: 20190901
